FAERS Safety Report 7817831-8 (Version None)
Quarter: 2011Q4

REPORT INFORMATION
  Report Type: 
  Country: None (occurrence: None)
  Receive Date: 20111017
  Receipt Date: 20111008
  Transmission Date: 20120403
  Serious: Yes (Other)
  Sender: FDA-Public Use
  Company Number: US-BAYER-2011-097347

PATIENT
  Sex: Female

DRUGS (2)
  1. YAZ [Suspect]
     Dosage: UNK
     Dates: start: 20070601, end: 20090401
  2. YASMIN [Suspect]
     Dosage: UNK
     Dates: start: 20070601, end: 20090401

REACTIONS (3)
  - GALLBLADDER DISORDER [None]
  - PAIN [None]
  - INJURY [None]
